FAERS Safety Report 14030412 (Version 1)
Quarter: 2017Q4

REPORT INFORMATION
  Report Type: Report from Study
  Country: FR (occurrence: FR)
  Receive Date: 20171002
  Receipt Date: 20171002
  Transmission Date: 20180321
  Serious: Yes (Death, Other)
  Sender: FDA-Public Use
  Company Number: FR-GILEAD-2017-0294932

PATIENT
  Age: 74 Year
  Sex: Male
  Weight: 85.5 kg

DRUGS (11)
  1. DIACOR                             /00331401/ [Concomitant]
     Indication: HYPERTENSION
     Dosage: 3 DF, QD
     Dates: start: 2015, end: 20160729
  2. LERCAN [Concomitant]
     Active Substance: LERCANIDIPINE
     Indication: HYPERTENSION
     Dosage: 10 MG, QD
     Dates: start: 2012, end: 20160729
  3. LASILIX                            /00032601/ [Concomitant]
     Active Substance: FUROSEMIDE
     Indication: ASCITES
     Dosage: 40 MG, QD
     Dates: start: 201307, end: 20160729
  4. NOVORAPID [Concomitant]
     Active Substance: INSULIN ASPART
     Indication: DIABETES MELLITUS
     Dosage: UNK, PRN
     Dates: start: 2015, end: 20160729
  5. DIACOR                             /00331401/ [Concomitant]
     Indication: GASTRITIS
     Dosage: 3 DF, QD
     Dates: start: 201006, end: 20160729
  6. LANTUS [Concomitant]
     Active Substance: INSULIN GLARGINE
     Indication: DIABETES MELLITUS
     Dosage: 30 UNITS, QD
     Dates: start: 2015, end: 20160729
  7. SOFOSBUVIR [Suspect]
     Active Substance: SOFOSBUVIR
     Indication: HEPATITIS C
     Dosage: 400 MG, UNK
     Route: 065
     Dates: start: 20140708, end: 20141001
  8. ALDACTONE [Concomitant]
     Active Substance: SPIRONOLACTONE
     Indication: ASCITES
     Dosage: 50 MG, QD
     Dates: start: 20150825, end: 20160729
  9. LEVOCARNIL                         /00878601/ [Concomitant]
     Indication: CARNITINE DEFICIENCY
     Dosage: 1 G, TID
     Dates: start: 20150928, end: 20160729
  10. SIMEPREVIR [Suspect]
     Active Substance: SIMEPREVIR
     Indication: HEPATITIS C
     Dosage: 150 MG, UNK
     Route: 065
     Dates: start: 20140708, end: 20141001
  11. INEXIUM                            /01479302/ [Concomitant]
     Active Substance: ESOMEPRAZOLE MAGNESIUM
     Indication: GASTRITIS
     Dosage: 40 MG, BID
     Dates: start: 201010, end: 20160729

REACTIONS (1)
  - Death [Fatal]

NARRATIVE: CASE EVENT DATE: 20160729
